FAERS Safety Report 7783303-2 (Version None)
Quarter: 2011Q3

REPORT INFORMATION
  Report Type: 
  Country: None (occurrence: None)
  Receive Date: 20110928
  Receipt Date: 20110919
  Transmission Date: 20111222
  Serious: Yes (Hospitalization)
  Sender: FDA-Public Use
  Company Number: US-BAYER-2011-020333

PATIENT
  Age: -1 Year
  Sex: Female
  Weight: 61.224 kg

DRUGS (5)
  1. YASMIN [Suspect]
     Dosage: UNK
     Dates: start: 20070101, end: 20090101
  2. ORTHO [Concomitant]
  3. YAZ [Suspect]
     Dosage: UNK
     Route: 048
     Dates: start: 20060101, end: 20090101
  4. DROSPIRENONE AND ETHINYL ESTRADIOL [Suspect]
  5. LOESTRIN 1.5/30 [Concomitant]

REACTIONS (7)
  - NEPHROLITHIASIS [None]
  - CHOLELITHIASIS [None]
  - THROMBOSIS [None]
  - GALLBLADDER POLYP [None]
  - PAIN [None]
  - ANXIETY [None]
  - BILIARY COLIC [None]
